APPROVED DRUG PRODUCT: NYSTATIN
Active Ingredient: NYSTATIN
Strength: 100,000 UNITS/ML
Dosage Form/Route: SUSPENSION;ORAL
Application: A062670 | Product #001
Applicant: TEVA PHARMACEUTICALS USA INC
Approved: Jun 18, 1987 | RLD: No | RS: No | Type: DISCN